FAERS Safety Report 6213325-4 (Version None)
Quarter: 2009Q2

REPORT INFORMATION
  Report Type: 
  Country: None (occurrence: None)
  Receive Date: 20090603
  Receipt Date: 20090601
  Transmission Date: 20091009
  Serious: Yes (Hospitalization, Other)
  Sender: FDA-Public Use
  Company Number: US-BRISTOL-MYERS SQUIBB COMPANY-14637185

PATIENT
  Age: 71 Year
  Sex: Female

DRUGS (3)
  1. WARFARIN SODIUM [Suspect]
     Indication: VASCULAR GRAFT
     Dosage: 29JAN09-01MAY09(INTERRUPTED);13WEEKS 2DAYS RESTARTED ON MAY2009
     Dates: start: 20090129
  2. PLAVIX [Suspect]
     Indication: THROMBOSIS PROPHYLAXIS
     Dosage: JAN09-01MAY09(INTERRUPTED);3 MONTHS RESTARTED ON MAY2009
     Route: 048
     Dates: start: 20090101
  3. ASPIRIN [Suspect]
     Indication: THROMBOSIS PROPHYLAXIS
     Dosage: 325MG/D STARTED APPROX 4-5YRS AGO; JAN09-01MAY09(3 MTHS)INTERRUP RESTARTED:MAY09
     Route: 048

REACTIONS (7)
  - APHASIA [None]
  - BLOOD COUNT ABNORMAL [None]
  - CEREBROVASCULAR ACCIDENT [None]
  - GASTRIC DISORDER [None]
  - GASTROOESOPHAGEAL REFLUX DISEASE [None]
  - HAEMORRHAGE [None]
  - URTICARIA [None]
